FAERS Safety Report 8747195 (Version 4)
Quarter: 2012Q4

REPORT INFORMATION
  Report Type: Report from Study
  Country: BE (occurrence: BE)
  Receive Date: 20120827
  Receipt Date: 20121206
  Transmission Date: 20130627
  Serious: Yes (Death, Life-Threatening, Hospitalization)
  Sender: FDA-Public Use
  Company Number: BE-B.I. PHARMACEUTICALS,INC./RIDGEFIELD-2012-BL-00477BL

PATIENT
  Age: 84 Year
  Sex: Male

DRUGS (8)
  1. PRADAXA [Suspect]
     Indication: ATRIAL FIBRILLATION
     Dosage: 220 mg
     Route: 048
     Dates: start: 20120123, end: 20120802
  2. ASAFLOW [Suspect]
     Dosage: 80 NR
  3. PERSANTINE [Suspect]
     Dosage: 150 mg
  4. NOVONORM [Concomitant]
     Indication: TYPE 2 DIABETES MELLITUS
     Dosage: 3 mg
     Route: 048
  5. TENORMIN MITIS [Concomitant]
     Indication: HYPERTENSION
     Dosage: 50 mg
     Route: 048
  6. ZANTAC [Concomitant]
     Indication: GASTRITIS
     Dosage: 150 mg
     Route: 048
  7. SERLAIN [Concomitant]
     Indication: DEPRESSION
     Dosage: 50 mg
     Route: 048
  8. ZANIDIP [Concomitant]
     Indication: DEPRESSION
     Dosage: 50 mg
     Route: 048

REACTIONS (7)
  - Cerebral haemorrhage [Fatal]
  - Coma [Fatal]
  - Fall [Not Recovered/Not Resolved]
  - Skull fracture [Not Recovered/Not Resolved]
  - Malaise [Not Recovered/Not Resolved]
  - Headache [Unknown]
  - Vomiting [Unknown]
